FAERS Safety Report 24439616 (Version 1)
Quarter: 2024Q4

REPORT INFORMATION
  Report Type: Spontaneous
  Country: US (occurrence: US)
  Receive Date: 20241015
  Receipt Date: 20241015
  Transmission Date: 20250115
  Serious: Yes (Life-Threatening)
  Sender: MISSION PHARMACAL COMPANY
  Company Number: US-Mission Pharmacal Company-2163111

PATIENT
  Age: 78 Year
  Sex: Male

DRUGS (1)
  1. THIOLA EC [Suspect]
     Active Substance: TIOPRONIN
     Indication: Nephrolithiasis
     Dates: start: 20200108

REACTIONS (1)
  - Renal impairment [Unknown]
